FAERS Safety Report 26098414 (Version 2)
Quarter: 2025Q4

REPORT INFORMATION
  Report Type: Spontaneous
  Country: RU (occurrence: RU)
  Receive Date: 20251127
  Receipt Date: 20251205
  Transmission Date: 20260117
  Serious: Yes (Other)
  Sender: VERITY PHARMACEUTICALS INC.
  Company Number: RU-VER-202500015

PATIENT
  Age: 75 Year
  Sex: Male

DRUGS (3)
  1. TRIPTORELIN PAMOATE [Suspect]
     Active Substance: TRIPTORELIN PAMOATE
     Indication: Prostate cancer
     Route: 030
     Dates: start: 201811, end: 202008
  2. TRIPTORELIN PAMOATE [Suspect]
     Active Substance: TRIPTORELIN PAMOATE
     Indication: Prostate cancer
     Route: 030
     Dates: start: 202112
  3. DOCETAXEL [Suspect]
     Active Substance: DOCETAXEL
     Indication: Prostate cancer
     Route: 065
     Dates: start: 201811

REACTIONS (2)
  - Enostosis [Unknown]
  - Metastases to spine [Unknown]

NARRATIVE: CASE EVENT DATE: 20210701
